FAERS Safety Report 14641429 (Version 1)
Quarter: 2018Q1

REPORT INFORMATION
  Report Type: Spontaneous
  Country: FR (occurrence: FR)
  Receive Date: 20180315
  Receipt Date: 20180315
  Transmission Date: 20180509
  Serious: Yes (Hospitalization)
  Sender: FDA-Public Use
  Company Number: FR-JNJFOC-20180315625

PATIENT
  Age: 86 Year
  Sex: Female
  Weight: 60.4 kg

DRUGS (12)
  1. LOVENOX [Concomitant]
     Active Substance: ENOXAPARIN SODIUM
     Route: 058
  2. DUROGESIC [Suspect]
     Active Substance: FENTANYL
     Indication: PAIN IN EXTREMITY
     Route: 062
     Dates: start: 20171219, end: 20180117
  3. HUMALOG [Concomitant]
     Active Substance: INSULIN LISPRO
     Route: 058
  4. FLUINDIONE [Concomitant]
     Active Substance: FLUINDIONE
     Route: 048
  5. LEVEMIR [Concomitant]
     Active Substance: INSULIN DETEMIR
     Route: 058
  6. LANSOPRAZOLE. [Concomitant]
     Active Substance: LANSOPRAZOLE
     Route: 048
  7. PAROXETINE. [Concomitant]
     Active Substance: PAROXETINE
     Route: 048
  8. LYRICA [Concomitant]
     Active Substance: PREGABALIN
     Route: 048
  9. PECFENT [Suspect]
     Active Substance: FENTANYL CITRATE
     Indication: PAIN IN EXTREMITY
     Route: 045
     Dates: start: 20171219, end: 20171222
  10. STILNOX [Concomitant]
     Active Substance: ZOLPIDEM TARTRATE
     Route: 048
  11. KARDEGIC [Concomitant]
     Active Substance: ASPIRIN DL-LYSINE
     Route: 048
  12. AMIODARONE [Concomitant]
     Active Substance: AMIODARONE
     Route: 048

REACTIONS (4)
  - Faecal vomiting [Recovered/Resolved]
  - Oxygen saturation decreased [Recovered/Resolved]
  - Somnolence [Recovered/Resolved]
  - Miosis [Recovered/Resolved]

NARRATIVE: CASE EVENT DATE: 20171222
